FAERS Safety Report 7467115-5 (Version None)
Quarter: 2011Q2

REPORT INFORMATION
  Report Type: 
  Country: None (occurrence: None)
  Receive Date: 20110509
  Receipt Date: 20110412
  Transmission Date: 20111010
  Serious: Yes (Hospitalization)
  Sender: FDA-Public Use
  Company Number: US-BAYER-201039386NA

PATIENT
  Age: 28 Year
  Sex: Female
  Weight: 88 kg

DRUGS (3)
  1. YAZ [Suspect]
     Indication: ORAL CONTRACEPTION
     Route: 048
     Dates: start: 20080401, end: 20081001
  2. NSAID'S [Concomitant]
     Dosage: UNK UNK, PRN
  3. ANTIBIOTICS [Concomitant]

REACTIONS (1)
  - PULMONARY EMBOLISM [None]
